FAERS Safety Report 21477688 (Version 3)
Quarter: 2022Q4

REPORT INFORMATION
  Report Type: Spontaneous
  Country: US (occurrence: US)
  Receive Date: 20221019
  Receipt Date: 20221121
  Transmission Date: 20230113
  Serious: Yes (Other)
  Sender: FDA-Public Use
  Company Number: US-BRISTOL-MYERS SQUIBB COMPANY-2022-123302

PATIENT
  Age: 64 Year
  Sex: Female

DRUGS (1)
  1. POMALYST [Suspect]
     Active Substance: POMALIDOMIDE
     Indication: Plasma cell myeloma
     Dosage: FREQUENCY-TAKE 1 CAPSULE BY MOUTH DAILY ON DAYS  1-21 OF EACH 28-DAY CYCLE. MAY TAKE W/ OR W/O FOOD
     Route: 048

REACTIONS (6)
  - Headache [Unknown]
  - Eye disorder [Unknown]
  - Muscle twitching [Unknown]
  - Hypoaesthesia [Unknown]
  - Neuropathy peripheral [Unknown]
  - Muscle spasms [Unknown]

NARRATIVE: CASE EVENT DATE: 20221016
